FAERS Safety Report 5407963-6 (Version None)
Quarter: 2007Q3

REPORT INFORMATION
  Report Type: 
  Country: None (occurrence: None)
  Receive Date: 20070803
  Receipt Date: 20070608
  Transmission Date: 20080115
  Serious: Yes (Other)
  Sender: FDA-Public Use
  Company Number: 2007SP012632

PATIENT
  Age: 75 Year
  Sex: Female
  Weight: 58.0604 kg

DRUGS (7)
  1. CLARITIN-D 24 HOUR [Suspect]
     Indication: NASAL CONGESTION
     Dosage: .5 DF; ONCE; PO
     Route: 048
     Dates: start: 20070607, end: 20070607
  2. DIURETIC [Concomitant]
  3. HYDROCHLOROTHIAZIDE [Concomitant]
  4. LANTUS [Concomitant]
  5. HUMALOG [Concomitant]
  6. CHONDROITIN W/ GLUCOSAMINE [Concomitant]
  7. MULTIPLE VITAMIN [Concomitant]

REACTIONS (2)
  - DYSPNOEA [None]
  - FEAR OF DEATH [None]
